FAERS Safety Report 7708864-0 (Version None)
Quarter: 2011Q3

REPORT INFORMATION
  Report Type: 
  Country: None (occurrence: None)
  Receive Date: 20110819
  Receipt Date: 20110808
  Transmission Date: 20111222
  Serious: Yes (Hospitalization)
  Sender: FDA-Public Use
  Company Number: E2B_00000092

PATIENT
  Age: 88 Year
  Sex: Female
  Weight: 56.8 kg

DRUGS (1)
  1. LAMOTRIGINE [Suspect]
     Indication: EPILEPSY
     Dosage: 1-0-2 (75 MG),ORAL
     Route: 048
     Dates: end: 20110715

REACTIONS (1)
  - DERMATITIS EXFOLIATIVE [None]
